FAERS Safety Report 11742866 (Version 1)
Quarter: 2015Q4

REPORT INFORMATION
  Report Type: Spontaneous
  Country: US (occurrence: US)
  Receive Date: 20151116
  Receipt Date: 20151116
  Transmission Date: 20160304
  Serious: Yes (Other)
  Sender: FDA-Public Use
  Company Number: US-PFIZER INC-2015382803

PATIENT
  Age: 54 Year
  Sex: Male
  Weight: 89 kg

DRUGS (7)
  1. VIAGRA [Suspect]
     Active Substance: SILDENAFIL CITRATE
     Indication: DISCOMFORT
     Dosage: 100 MG, AS NEEDED
     Dates: start: 2011
  2. DEPAKOTE [Concomitant]
     Active Substance: DIVALPROEX SODIUM
     Indication: BIPOLAR DISORDER
     Dosage: 1000 MG, 2X/DAY
  3. VIAGRA [Suspect]
     Active Substance: SILDENAFIL CITRATE
     Indication: FEAR
  4. KLONOPIN [Concomitant]
     Active Substance: CLONAZEPAM
     Indication: PANIC DISORDER
     Dosage: 4 MG, AS NEEDED
  5. SYNTHROID [Concomitant]
     Active Substance: LEVOTHYROXINE SODIUM
     Indication: HYPOTHYROIDISM
     Dosage: 175 ?G, 1X/DAY
  6. BUPROPION HCL [Concomitant]
     Active Substance: BUPROPION HYDROCHLORIDE
     Indication: DEPRESSION
     Dosage: 150 MG, 2X/DAY
  7. VIAGRA [Suspect]
     Active Substance: SILDENAFIL CITRATE
     Indication: ANXIETY

REACTIONS (5)
  - Product use issue [Unknown]
  - Weight fluctuation [Not Recovered/Not Resolved]
  - Atrial flutter [Unknown]
  - Heart rate decreased [Unknown]
  - Weight decreased [Not Recovered/Not Resolved]

NARRATIVE: CASE EVENT DATE: 2011
